FAERS Safety Report 20213610 (Version 1)
Quarter: 2021Q4

REPORT INFORMATION
  Report Type: Spontaneous
  Country: US (occurrence: None)
  Receive Date: 20211221
  Receipt Date: 20211221
  Transmission Date: 20220304
  Serious: No
  Sender: FDA-Public Use
  Company Number: None

PATIENT
  Age: 4 Year
  Sex: Male
  Weight: 13.15 kg

DRUGS (2)
  1. XEMBIFY [Suspect]
     Active Substance: HUMAN IMMUNOGLOBULIN G
  2. TYLENOL [Concomitant]

REACTIONS (3)
  - Pain [None]
  - Injection site bruising [None]
  - Skin mass [None]

NARRATIVE: CASE EVENT DATE: 20211215
